FAERS Safety Report 5297769-3 (Version None)
Quarter: 2007Q2

REPORT INFORMATION
  Report Type: 
  Country: None (occurrence: None)
  Receive Date: 20070412
  Receipt Date: 20070412
  Transmission Date: 20071010
  Serious: Yes (Other)
  Sender: FDA-Public Use
  Company Number: None

PATIENT
  Sex: Female

DRUGS (7)
  1. REVLIMID [Suspect]
     Indication: MULTIPLE MYELOMA
     Dosage: 25MG DAILY 21D/28D PO
     Route: 048
  2. DEXAMETHASONE 0.5MG TAB [Concomitant]
  3. LOVASTATIN [Concomitant]
  4. METFORMIN HCL [Concomitant]
  5. PRINZIDE [Concomitant]
  6. FAMOTIDINE [Concomitant]
  7. TRAZODONE HCL [Concomitant]

REACTIONS (4)
  - MUSCLE SPASMS [None]
  - NEUROPATHY [None]
  - PRURITUS [None]
  - RASH [None]
